FAERS Safety Report 4423183-6 (Version None)
Quarter: 2004Q3

REPORT INFORMATION
  Report Type: 
  Country: None (occurrence: None)
  Receive Date: 20040805
  Receipt Date: 20040721
  Transmission Date: 20050211
  Serious: Yes (Hospitalization, Other)
  Sender: FDA-Public Use
  Company Number: 197138

PATIENT
  Age: 52 Year
  Sex: Female

DRUGS (6)
  1. AVONEX [Suspect]
     Indication: MULTIPLE SCLEROSIS
     Dosage: 30 MCG QW IM
     Route: 030
     Dates: start: 19990401
  2. AVONEX [Suspect]
     Indication: MULTIPLE SCLEROSIS
     Dosage: 30 MCG QW IM
     Route: 030
  3. PAXIL [Concomitant]
  4. BACLOFEN [Concomitant]
  5. MACRODANTIN [Concomitant]
  6. ELAVIL [Concomitant]

REACTIONS (17)
  - ANKLE FRACTURE [None]
  - ARTHRALGIA [None]
  - ASTHENIA [None]
  - BLADDER DISORDER [None]
  - BURNING SENSATION [None]
  - CHOLELITHIASIS [None]
  - COORDINATION ABNORMAL [None]
  - DEMYELINATION [None]
  - DIPLOPIA [None]
  - DYSARTHRIA [None]
  - FATIGUE [None]
  - FOOT AMPUTATION [None]
  - FRACTURE NONUNION [None]
  - HYPOAESTHESIA [None]
  - MUSCLE TIGHTNESS [None]
  - SOMNOLENCE [None]
  - SPONDYLOSIS [None]
